FAERS Safety Report 4330465-5 (Version None)
Quarter: 2004Q1

REPORT INFORMATION
  Report Type: 
  Country: None (occurrence: None)
  Receive Date: 20040329
  Receipt Date: 20040317
  Transmission Date: 20041129
  Serious: Yes (Hospitalization)
  Sender: FDA-Public Use
  Company Number: K200400398

PATIENT
  Age: 17 Year
  Sex: Female

DRUGS (3)
  1. NORDETTE-21 [Suspect]
     Indication: CONTRACEPTION
     Dosage: 1 TABLET, QD, ORAL
     Route: 048
  2. ACETAMINOPHEN [Concomitant]
  3. ACETYLCYSTEINE [Concomitant]

REACTIONS (11)
  - ACTIVATED PARTIAL THROMBOPLASTIN TIME PROLONGED [None]
  - BLOOD FIBRINOGEN DECREASED [None]
  - BLOOD LACTATE DEHYDROGENASE INCREASED [None]
  - CHOLESTASIS [None]
  - COAGULOPATHY [None]
  - DRUG TOXICITY [None]
  - FIBRIN DEGRADATION PRODUCTS INCREASED [None]
  - HAEMOLYTIC URAEMIC SYNDROME [None]
  - HAPTOGLOBIN DECREASED [None]
  - PROTHROMBIN TIME RATIO DECREASED [None]
  - RED BLOOD CELL SCHISTOCYTES PRESENT [None]
